FAERS Safety Report 6845640-5 (Version None)
Quarter: 2010Q3

REPORT INFORMATION
  Report Type: 
  Country: None (occurrence: None)
  Receive Date: 20100713
  Receipt Date: 20100707
  Transmission Date: 20110219
  Serious: Yes (Death, Other)
  Sender: FDA-Public Use
  Company Number: 2010US002664

PATIENT
  Age: 34 Year
  Sex: Male
  Weight: 136 kg

DRUGS (7)
  1. PROGRAF [Suspect]
     Indication: RENAL TRANSPLANT
     Dosage: 5 MG, BID, ORAL
     Route: 048
     Dates: start: 19970101, end: 20100526
  2. CELLCEPT [Concomitant]
  3. PREDNISONE TAB [Concomitant]
  4. CARVEDILOL [Concomitant]
  5. FUROSEMIDE [Concomitant]
  6. FOSINOPRIL SODIUM [Concomitant]
  7. METOPROLOL SUCCINATE [Concomitant]

REACTIONS (2)
  - BREATH SOUNDS ABNORMAL [None]
  - SLEEP APNOEA SYNDROME [None]
